FAERS Safety Report 21566561 (Version 1)
Quarter: 2022Q4

REPORT INFORMATION
  Report Type: Other
  Country: CH (occurrence: CH)
  Receive Date: 20221108
  Receipt Date: 20221108
  Transmission Date: 20230113
  Serious: Yes (Hospitalization)
  Sender: FDA-Public Use
  Company Number: None

PATIENT
  Age: 78 Year
  Sex: Female
  Weight: 53 kg

DRUGS (2)
  1. ACTEMRA [Suspect]
     Active Substance: TOCILIZUMAB
     Indication: Rheumatoid arthritis
     Dosage: 480 MG EVERY 4 WEEKS FROM 01.02.2010 TO 15.02.2013 AND RESUMED ON 04.06.2013
     Route: 042
     Dates: start: 20100201
  2. PREDNISONE [Suspect]
     Active Substance: PREDNISONE
     Indication: Rheumatoid arthritis
     Route: 048
     Dates: start: 20090416

REACTIONS (2)
  - Otitis media [Unknown]
  - Meningitis [Unknown]

NARRATIVE: CASE EVENT DATE: 20220404
